FAERS Safety Report 9751824 (Version 2)
Quarter: 2013Q4

REPORT INFORMATION
  Report Type: Report from Study
  Country: CL (occurrence: CL)
  Receive Date: 20131213
  Receipt Date: 20131213
  Transmission Date: 20140711
  Serious: Yes (Hospitalization, Other)
  Sender: FDA-Public Use
  Company Number: CL-ROCHE-1304360

PATIENT
  Age: 58 Year
  Sex: Female
  Weight: 70 kg

DRUGS (5)
  1. HERCEPTIN [Suspect]
     Indication: BREAST CANCER
     Route: 042
     Dates: start: 20130813
  2. SERTRALINE [Concomitant]
     Indication: DEPRESSION
     Route: 048
     Dates: start: 2008
  3. CLONAZEPAM [Concomitant]
     Indication: DEPRESSION
     Route: 048
     Dates: start: 2008
  4. DIPYRONE [Concomitant]
     Indication: BONE PAIN
     Route: 048
     Dates: start: 2012
  5. TRAMADOL [Concomitant]
     Indication: BONE PAIN
     Route: 048
     Dates: start: 2012

REACTIONS (3)
  - Pneumonia [Recovering/Resolving]
  - Arrhythmia [Not Recovered/Not Resolved]
  - Venous occlusion [Not Recovered/Not Resolved]
